FAERS Safety Report 10482907 (Version 1)
Quarter: 2014Q3

REPORT INFORMATION
  Report Type: Spontaneous
  Country: CA (occurrence: CA)
  Receive Date: 20140929
  Receipt Date: 20140929
  Transmission Date: 20150326
  Serious: Yes (Other)
  Sender: FDA-Public Use
  Company Number: CA-CELGENE-028-POMAL-14093118

PATIENT
  Age: 59 Year
  Sex: Female

DRUGS (2)
  1. DEXAMETHASONE. [Suspect]
     Active Substance: DEXAMETHASONE
     Indication: PLASMA CELL MYELOMA
     Route: 065
  2. POMALYST [Suspect]
     Active Substance: POMALIDOMIDE
     Indication: PLASMA CELL MYELOMA

REACTIONS (10)
  - Rib fracture [Unknown]
  - Fatigue [Unknown]
  - Deafness [Unknown]
  - Oral candidiasis [Unknown]
  - Restless legs syndrome [Unknown]
  - Hyperhidrosis [Unknown]
  - Muscle spasms [Unknown]
  - Weight increased [Unknown]
  - Tooth disorder [Unknown]
  - Tremor [Unknown]
